FAERS Safety Report 7172663-1 (Version None)
Quarter: 2010Q4

REPORT INFORMATION
  Report Type: 
  Country: None (occurrence: None)
  Receive Date: 20101217
  Receipt Date: 20101207
  Transmission Date: 20110411
  Serious: Yes (Hospitalization)
  Sender: FDA-Public Use
  Company Number: US-AMGEN-USASP2010005406

PATIENT

DRUGS (2)
  1. ENBREL [Suspect]
     Indication: RHEUMATOID ARTHRITIS
     Dosage: 50 MG, QWK
     Route: 058
     Dates: start: 20030401, end: 20101023
  2. METOTREXATE [Concomitant]
     Dosage: UNK

REACTIONS (4)
  - CHEST DISCOMFORT [None]
  - HYPERTENSION [None]
  - LIMB DISCOMFORT [None]
  - TACHYCARDIA [None]
